FAERS Safety Report 8313437-5 (Version None)
Quarter: 2012Q2

REPORT INFORMATION
  Report Type: 
  Country: None (occurrence: None)
  Receive Date: 20120426
  Receipt Date: 20120424
  Transmission Date: 20120825
  Serious: Yes (Death, Hospitalization)
  Sender: FDA-Public Use
  Company Number: PHFR2012GB000516

PATIENT
  Sex: Male

DRUGS (4)
  1. CHLORPROMAZINE [Concomitant]
     Dosage: 100 MG
     Route: 048
  2. PAROXETINE [Concomitant]
     Dosage: 20 MG
     Route: 048
  3. PROCYCLIDINE HYDROCHLORIDE 2MG TAB [Concomitant]
     Dosage: 10 MG
     Route: 048
  4. CLOZARIL [Suspect]
     Indication: SCHIZOPHRENIA
     Route: 048
     Dates: start: 19910513

REACTIONS (7)
  - HYPOTENSION [None]
  - ABDOMINAL INFECTION [None]
  - GENERAL PHYSICAL HEALTH DETERIORATION [None]
  - APPENDICITIS [None]
  - MULTI-ORGAN FAILURE [None]
  - MALAISE [None]
  - SEPSIS [None]
